FAERS Safety Report 6043749-X (Version None)
Quarter: 2009Q1

REPORT INFORMATION
  Report Type: 
  Country: None (occurrence: None)
  Receive Date: 20090120
  Receipt Date: 20090109
  Transmission Date: 20090719
  Serious: Yes (Other)
  Sender: FDA-Public Use
  Company Number: PHEH2009US00672

PATIENT
  Sex: Female
  Weight: 82.086 kg

DRUGS (3)
  1. RECLAST [Suspect]
     Indication: OSTEOPOROSIS
     Dosage: 5 MG YEARLY
     Route: 042
     Dates: start: 20090106
  2. METHOTREXATE [Concomitant]
     Indication: RHEUMATOID ARTHRITIS
     Dosage: 7.5 MG, QW
     Route: 048
     Dates: start: 20050818
  3. SERAX [Concomitant]
     Indication: ANXIETY
     Dosage: 15 MG Q 4-6 HR PRN

REACTIONS (3)
  - BEDRIDDEN [None]
  - HYPOCALCAEMIA [None]
  - MUSCULAR WEAKNESS [None]
